FAERS Safety Report 25389245 (Version 1)
Quarter: 2025Q2

REPORT INFORMATION
  Report Type: Spontaneous
  Country: DE (occurrence: DE)
  Receive Date: 20250603
  Receipt Date: 20250603
  Transmission Date: 20250717
  Serious: Yes (Hospitalization, Other)
  Sender: REGENERON
  Company Number: None

PATIENT
  Age: 79 Year
  Sex: Male

DRUGS (1)
  1. EYLEA [Suspect]
     Active Substance: AFLIBERCEPT
     Indication: Product used for unknown indication
     Route: 031
     Dates: start: 20250211, end: 20250506

REACTIONS (3)
  - Endophthalmitis [Unknown]
  - Conjunctivitis [Unknown]
  - Vitrectomy [Unknown]

NARRATIVE: CASE EVENT DATE: 20250506
